FAERS Safety Report 11535110 (Version 1)
Quarter: 2015Q3

REPORT INFORMATION
  Report Type: Spontaneous
  Country: US (occurrence: None)
  Receive Date: 20150921
  Receipt Date: 20150921
  Transmission Date: 20151125
  Serious: No
  Sender: FDA-Public Use
  Company Number: None

PATIENT
  Age: 57 Year
  Sex: Female
  Weight: 65.32 kg

DRUGS (13)
  1. QVAR [Suspect]
     Active Substance: BECLOMETHASONE DIPROPIONATE
     Route: 055
  2. LIOTHYRONINE [Concomitant]
     Active Substance: LIOTHYRONINE
  3. LEVOTHYROXINE. [Concomitant]
     Active Substance: LEVOTHYROXINE
  4. VITAMIN C [Concomitant]
     Active Substance: ASCORBIC ACID
  5. MAGNESIUM [Concomitant]
     Active Substance: MAGNESIUM
  6. HRT (ESTRACE CREAM, ESTROGEN PATCH, TESTOSTERON GEL, PROGRESTERONE) [Concomitant]
  7. FLONASE [Concomitant]
     Active Substance: FLUTICASONE PROPIONATE
  8. PRO-BIOTICS [Concomitant]
  9. VALERIAN ROOT [Concomitant]
     Active Substance: VALERIAN
  10. B3 [Concomitant]
  11. D3 [Concomitant]
     Active Substance: 25-HYDROXYCHOLECALCIFEROL, 5-TRANS-
  12. KLONOPIN [Concomitant]
     Active Substance: CLONAZEPAM
  13. ALPHA LIPOIC ACID [Concomitant]
     Active Substance: .ALPHA.-LIPOIC ACID

REACTIONS (6)
  - Coating in mouth [None]
  - Pruritus [None]
  - Oropharyngeal pain [None]
  - White matter lesion [None]
  - Obstructive airways disorder [None]
  - Device malfunction [None]
